FAERS Safety Report 12118590 (Version 2)
Quarter: 2016Q1

REPORT INFORMATION
  Report Type: Spontaneous
  Country: SI (occurrence: SI)
  Receive Date: 20160226
  Receipt Date: 20160226
  Transmission Date: 20160526
  Serious: Yes (Other)
  Sender: FDA-Public Use
  Company Number: SI-ACTAVIS-2016-04265

PATIENT
  Age: 79 Year
  Sex: Female

DRUGS (7)
  1. DULOXETINE (UNKNOWN) [Suspect]
     Active Substance: DULOXETINE
     Indication: DEPRESSION
     Dosage: 30 MG, DAILY
     Route: 065
  2. TIANEPTINE [Concomitant]
     Active Substance: TIANEPTINE
  3. DONEPEZIL HYDROCHLORIDE (UNKNOWN) [Suspect]
     Active Substance: DONEPEZIL HYDROCHLORIDE
     Indication: DEMENTIA ALZHEIMER^S TYPE
     Dosage: 10 MG, DAILY
     Route: 065
  4. DONEPEZIL HYDROCHLORIDE (UNKNOWN) [Suspect]
     Active Substance: DONEPEZIL HYDROCHLORIDE
     Dosage: 5 UNK, UNK
     Route: 065
  5. TIANEPTINE [Concomitant]
     Active Substance: TIANEPTINE
     Indication: DEPRESSION
     Route: 065
  6. GALANTAMINE HYDROBROMIDE (WATSON LABORATORIES) [Suspect]
     Active Substance: GALANTAMINE
     Indication: DEMENTIA ALZHEIMER^S TYPE
     Dosage: 8 MG, DAILY
     Route: 065
  7. DONEPEZIL HYDROCHLORIDE (UNKNOWN) [Suspect]
     Active Substance: DONEPEZIL HYDROCHLORIDE
     Dosage: 5 MG, DAILY
     Route: 065

REACTIONS (8)
  - Pain [Unknown]
  - Dysgeusia [Unknown]
  - Dizziness [Unknown]
  - Libido increased [Recovered/Resolved]
  - Nausea [Unknown]
  - Anxiety [Unknown]
  - Parosmia [Unknown]
  - Decreased appetite [Unknown]
